FAERS Safety Report 10063724 (Version 1)
Quarter: 2014Q2

REPORT INFORMATION
  Report Type: Spontaneous
  Country: ES (occurrence: ES)
  Receive Date: 20140407
  Receipt Date: 20140407
  Transmission Date: 20141212
  Serious: Yes (Life-Threatening, Hospitalization)
  Sender: FDA-Public Use
  Company Number: PHHY2014ES040668

PATIENT
  Age: 77 Year
  Sex: Female

DRUGS (9)
  1. EXFORGE [Suspect]
     Dosage: UNK UKN, UNK
     Route: 048
     Dates: start: 20130403, end: 20130420
  2. HEIPRAM [Interacting]
     Indication: DEPRESSION
     Dosage: UNK UKN, UNK
     Route: 048
     Dates: start: 20130403, end: 20130420
  3. ADIRO [Concomitant]
     Indication: ISCHAEMIC CARDIOMYOPATHY
     Dosage: 100 MG, UNK
     Route: 048
     Dates: start: 2006
  4. INEGY [Concomitant]
     Indication: DYSLIPIDAEMIA
     Dosage: 1 DF (10 MG EZET/ 20 MG SIMV), QD
     Route: 048
  5. ORFIDAL [Concomitant]
     Indication: ANXIETY
     Dosage: 1 MG, QD
     Route: 048
     Dates: start: 20130403, end: 20130420
  6. SEVIKAR HCT [Concomitant]
     Indication: HYPERTENSION
     Dosage: 1 DF (5 MG AMLO/ 12.5 MG HYDR/ 40 MG OLME), UNK
     Route: 048
     Dates: start: 20130403, end: 20130420
  7. UNIKET RETARD [Concomitant]
     Indication: ISCHAEMIC CARDIOMYOPATHY
     Dosage: 50 MG, UNK
     Dates: start: 20130403
  8. VESICARE [Concomitant]
     Indication: HYPERTONIC BLADDER
     Dosage: 5 MG, UNK
     Route: 048
     Dates: start: 2006
  9. DIURETICS [Concomitant]
     Dosage: UNK UKN, UNK

REACTIONS (3)
  - Subarachnoid haemorrhage [Recovering/Resolving]
  - Craniocerebral injury [Recovering/Resolving]
  - Hyponatraemia [Recovered/Resolved]
